FAERS Safety Report 6564547-4 (Version None)
Quarter: 2010Q1

REPORT INFORMATION
  Report Type: 
  Country: None (occurrence: None)
  Receive Date: 20100201
  Receipt Date: 20100119
  Transmission Date: 20100710
  Serious: Yes (Hospitalization)
  Sender: FDA-Public Use
  Company Number: PHHY2010VE04174

PATIENT
  Sex: Female

DRUGS (9)
  1. ACLASTA [Suspect]
     Indication: OSTEOPOROSIS
     Dosage: 5 MG/YEAR
     Dates: start: 20090301
  2. ACLASTA [Suspect]
     Dosage: 5 MG
     Dates: start: 20091201
  3. GLUCOFAGE [Concomitant]
     Dosage: UNK
     Route: 048
     Dates: end: 20090101
  4. CALCIUM [Concomitant]
     Dosage: ONCE A DAY
     Route: 048
  5. LEVOTHYROXINE SODIUM [Concomitant]
     Dosage: 50 UG, QD
  6. LOSARTAN POTASSIUM [Concomitant]
     Indication: HYPERTENSION
     Dosage: UNK
  7. CATAPRESAN [Concomitant]
     Indication: HYPERTENSION
     Dosage: 0.150 MG
  8. AMLODIPINE [Concomitant]
     Indication: HYPERTENSION
     Dosage: 5 MG
  9. GLUCOSAMINE [Concomitant]
     Dosage: UNK
     Dates: start: 20090201

REACTIONS (3)
  - DRUG INEFFECTIVE [None]
  - HIP ARTHROPLASTY [None]
  - INAPPROPRIATE SCHEDULE OF DRUG ADMINISTRATION [None]
